FAERS Safety Report 11075289 (Version 1)
Quarter: 2015Q2

REPORT INFORMATION
  Report Type: Spontaneous
  Country: US (occurrence: None)
  Receive Date: 20150428
  Receipt Date: 20150428
  Transmission Date: 20150821
  Serious: No
  Sender: FDA-Public Use
  Company Number: None

PATIENT
  Age: 54 Year
  Sex: Female
  Weight: 70.31 kg

DRUGS (2)
  1. DULOXETINE [Suspect]
     Active Substance: DULOXETINE
     Indication: CYST
     Dosage: 1 PILL A DAY ONCE DAILY TAKEN BY MOUTH
     Route: 048
     Dates: start: 20150324, end: 20150401
  2. DULOXETINE [Suspect]
     Active Substance: DULOXETINE
     Indication: PAIN
     Dosage: 1 PILL A DAY ONCE DAILY TAKEN BY MOUTH
     Route: 048
     Dates: start: 20150324, end: 20150401

REACTIONS (18)
  - Arthralgia [None]
  - Pruritus [None]
  - Suicidal ideation [None]
  - Feeling abnormal [None]
  - Vision blurred [None]
  - Feeding disorder [None]
  - Chromaturia [None]
  - Weight decreased [None]
  - Product quality issue [None]
  - Stomatitis [None]
  - Myalgia [None]
  - Urine odour abnormal [None]
  - Tremor [None]
  - Dehydration [None]
  - Migraine [None]
  - Dizziness [None]
  - Feelings of worthlessness [None]
  - Blepharospasm [None]

NARRATIVE: CASE EVENT DATE: 20150330
